FAERS Safety Report 11157615 (Version 1)
Quarter: 2015Q2

REPORT INFORMATION
  Report Type: Spontaneous
  Country: US (occurrence: None)
  Receive Date: 20150601
  Receipt Date: 20150601
  Transmission Date: 20150821
  Serious: Yes (Hospitalization)
  Sender: FDA-Public Use
  Company Number: None

PATIENT
  Age: 66 Year
  Sex: Male
  Weight: 85.3 kg

DRUGS (3)
  1. LEUPROLIDE ACETATE. [Suspect]
     Active Substance: LEUPROLIDE ACETATE
     Dates: start: 20150108
  2. CASODEX [Suspect]
     Active Substance: BICALUTAMIDE
     Indication: LUNG INFECTION
     Dates: start: 20150430
  3. CASODEX [Suspect]
     Active Substance: BICALUTAMIDE
     Indication: RESPIRATORY FAILURE
     Dates: start: 20150430

REACTIONS (4)
  - Acute respiratory failure [None]
  - Pleuritic pain [None]
  - Chronic obstructive pulmonary disease [None]
  - Pneumonia [None]

NARRATIVE: CASE EVENT DATE: 20150421
